FAERS Safety Report 7585840-2 (Version None)
Quarter: 2011Q2

REPORT INFORMATION
  Report Type: 
  Country: None (occurrence: None)
  Receive Date: 20110603
  Receipt Date: 20110331
  Transmission Date: 20111010
  Serious: No
  Sender: FDA-Public Use
  Company Number: 201101041

PATIENT
  Age: 63 Year
  Sex: Male

DRUGS (10)
  1. KEFLEX [Concomitant]
  2. NYSTATIN-TRIAMCINOLONE (TRIAMCINOLONE ACETONIDE) [Concomitant]
  3. XIAFLEX [Suspect]
     Indication: DUPUYTREN'S CONTRACTURE
     Dosage: 1 IN 1 D, INTRALESIONAL
     Route: 026
     Dates: start: 20110112, end: 20110112
  4. HYDROCODONE-ACETAMINOPHEN (PARACETAMOL) [Concomitant]
  5. HYDROCHLOROTHIAZIDE [Concomitant]
  6. ACETAMINOPHEN-CODEINE (CODEINE) [Concomitant]
  7. WARFARIN SODIUM [Concomitant]
  8. COUMADIN [Concomitant]
  9. BENICAR HCT (HYDROCHLOROTHIAZIDE) [Concomitant]
  10. FLUOROURACIL [Concomitant]

REACTIONS (2)
  - LACERATION [None]
  - DRY SKIN [None]
